FAERS Safety Report 7985667-3 (Version None)
Quarter: 2011Q4

REPORT INFORMATION
  Report Type: 
  Country: None (occurrence: None)
  Receive Date: 20111216
  Receipt Date: 20111206
  Transmission Date: 20120403
  Serious: Yes (Other)
  Sender: FDA-Public Use
  Company Number: FR-JNJFOC-20111203626

PATIENT
  Age: 35 Year
  Sex: Male

DRUGS (2)
  1. NSAID [Concomitant]
     Route: 065
  2. INFLIXIMAB, RECOMBINANT [Suspect]
     Indication: ANKYLOSING SPONDYLITIS
     Route: 042

REACTIONS (1)
  - ASTHMA [None]
